FAERS Safety Report 24777864 (Version 1)
Quarter: 2024Q4

REPORT INFORMATION
  Report Type: Spontaneous
  Country: CN (occurrence: CN)
  Receive Date: 20241226
  Receipt Date: 20241226
  Transmission Date: 20250115
  Serious: Yes (Other)
  Sender: SANOFI AVENTIS
  Company Number: CN-SANOFI-02350929

PATIENT
  Age: 29 Year
  Sex: Female

DRUGS (4)
  1. ELOXATIN [Suspect]
     Active Substance: OXALIPLATIN
     Indication: Rectal cancer
     Dosage: UNK (4X 50MG VIALS)
     Route: 041
     Dates: start: 2024
  2. ELOXATIN [Suspect]
     Active Substance: OXALIPLATIN
     Indication: Metastases to lymph nodes
     Dosage: UNK (3X 50MG VIALS)
     Route: 041
     Dates: start: 2024
  3. XELODA [Concomitant]
     Active Substance: CAPECITABINE
     Dosage: 3 DF, BID
  4. CINOBUFOTALIN [Concomitant]
     Active Substance: CINOBUFOTALIN
     Dosage: 2 DF, BID

REACTIONS (2)
  - Liver injury [Unknown]
  - Deafness neurosensory [Unknown]

NARRATIVE: CASE EVENT DATE: 20240101
